FAERS Safety Report 23442689 (Version 1)
Quarter: 2024Q1

REPORT INFORMATION
  Report Type: Spontaneous
  Country: US (occurrence: None)
  Receive Date: 20240124
  Receipt Date: 20240124
  Transmission Date: 20240409
  Serious: No
  Sender: FDA-Public Use
  Company Number: None

PATIENT
  Age: 23 Year
  Sex: Female

DRUGS (3)
  1. OLUMIANT [Suspect]
     Active Substance: BARICITINIB
     Indication: Rheumatoid arthritis
     Dosage: FREQUENCY : DAILY;?
     Route: 048
     Dates: start: 202312
  2. OLUMIANT [Suspect]
     Active Substance: BARICITINIB
     Indication: Immunology test abnormal
  3. OLUMIANT [Suspect]
     Active Substance: BARICITINIB
     Indication: Drug therapy

REACTIONS (1)
  - COVID-19 [None]
